FAERS Safety Report 20367380 (Version 17)
Quarter: 2022Q2

REPORT INFORMATION
  Report Type: Report from Study
  Country: AU (occurrence: AU)
  Receive Date: 20220124
  Receipt Date: 20220525
  Transmission Date: 20220720
  Serious: Yes (Other)
  Sender: FDA-Public Use
  Company Number: AU-JNJFOC-20211164834

PATIENT
  Age: 34 Year
  Sex: Female
  Weight: 130 kg

DRUGS (27)
  1. SELEXIPAG [Suspect]
     Active Substance: SELEXIPAG
     Indication: Pulmonary arterial hypertension
     Dosage: SHE IS TAKING UPTRAVI 200MCG AM, 400MCG PM STARTING 22/11/21.
     Route: 048
     Dates: start: 20210301
  2. SELEXIPAG [Suspect]
     Active Substance: SELEXIPAG
     Indication: Pulmonary arterial hypertension
     Dosage: SHE IS TAKING UPTRAVI 200MCG AM, 400MCG PM STARTING 22/11/21.
     Route: 048
     Dates: start: 202103
  3. SELEXIPAG [Suspect]
     Active Substance: SELEXIPAG
     Dosage: 400 UG IN AM, 400 UG IN PM
     Route: 048
     Dates: start: 20211206
  4. SELEXIPAG [Suspect]
     Active Substance: SELEXIPAG
     Dosage: 400MCG AM, 600MCG PM
     Route: 048
     Dates: start: 20211213
  5. SELEXIPAG [Suspect]
     Active Substance: SELEXIPAG
     Route: 048
     Dates: start: 20211227
  6. SELEXIPAG [Suspect]
     Active Substance: SELEXIPAG
     Route: 048
     Dates: start: 20220110
  7. SELEXIPAG [Suspect]
     Active Substance: SELEXIPAG
     Route: 048
     Dates: start: 20220127
  8. SELEXIPAG [Suspect]
     Active Substance: SELEXIPAG
     Route: 048
     Dates: start: 20220127
  9. SELEXIPAG [Suspect]
     Active Substance: SELEXIPAG
     Route: 048
     Dates: start: 20220127
  10. SELEXIPAG [Suspect]
     Active Substance: SELEXIPAG
     Route: 048
     Dates: start: 20220110
  11. SELEXIPAG [Suspect]
     Active Substance: SELEXIPAG
     Dosage: 800UG IN AM AND 1000UG IN PM
     Route: 048
  12. SELEXIPAG [Suspect]
     Active Substance: SELEXIPAG
     Route: 048
     Dates: start: 20220320
  13. SELEXIPAG [Suspect]
     Active Substance: SELEXIPAG
     Route: 048
     Dates: start: 20220321
  14. SELEXIPAG [Suspect]
     Active Substance: SELEXIPAG
     Dosage: 100 MCG MORNING, 1200 MCG NIGHT
     Route: 048
  15. SELEXIPAG [Suspect]
     Active Substance: SELEXIPAG
     Route: 048
     Dates: start: 20220415
  16. SELEXIPAG [Suspect]
     Active Substance: SELEXIPAG
     Dosage: STRENGTH: 800+1X200 (G MICROGRAM(S)
     Route: 048
     Dates: start: 20220502
  17. OPSUMIT [Suspect]
     Active Substance: MACITENTAN
     Indication: Pulmonary arterial hypertension
     Route: 048
     Dates: start: 20220303
  18. TADALAFIL [Suspect]
     Active Substance: TADALAFIL
     Indication: Pulmonary arterial hypertension
     Route: 048
     Dates: start: 20220303
  19. MAXOLON [Concomitant]
     Active Substance: METOCLOPRAMIDE HYDROCHLORIDE
  20. ESCITALOPRAM [Concomitant]
     Active Substance: ESCITALOPRAM OXALATE
     Indication: Depression
     Route: 048
     Dates: start: 20211213
  21. FERINJECT [Concomitant]
     Active Substance: FERRIC CARBOXYMALTOSE
     Indication: Nervous system disorder
  22. FERINJECT [Concomitant]
     Active Substance: FERRIC CARBOXYMALTOSE
     Indication: Musculoskeletal disorder
  23. FERINJECT [Concomitant]
     Active Substance: FERRIC CARBOXYMALTOSE
     Indication: Connective tissue disorder
  24. IRON ISOMALTOSIDE 1000 [Concomitant]
     Active Substance: IRON ISOMALTOSIDE 1000
     Indication: Nervous system disorder
  25. IRON ISOMALTOSIDE 1000 [Concomitant]
     Active Substance: IRON ISOMALTOSIDE 1000
     Indication: Musculoskeletal disorder
  26. IRON ISOMALTOSIDE 1000 [Concomitant]
     Active Substance: IRON ISOMALTOSIDE 1000
     Indication: Connective tissue disorder
  27. SPIRONOLACTONE [Concomitant]
     Active Substance: SPIRONOLACTONE
     Indication: Oedema
     Route: 048

REACTIONS (25)
  - Ventricular extrasystoles [Recovered/Resolved]
  - Pain [Recovered/Resolved]
  - Oxygen saturation decreased [Recovered/Resolved]
  - Gout [Recovered/Resolved]
  - Migraine [Not Recovered/Not Resolved]
  - Oedema [Not Recovered/Not Resolved]
  - Blood iron decreased [Not Recovered/Not Resolved]
  - Tachycardia [Not Recovered/Not Resolved]
  - Nausea [Recovered/Resolved]
  - Myalgia [Not Recovered/Not Resolved]
  - Diarrhoea [Recovered/Resolved]
  - Abdominal pain upper [Not Recovered/Not Resolved]
  - Fatigue [Not Recovered/Not Resolved]
  - Pain in extremity [Recovered/Resolved]
  - Muscle spasms [Not Recovered/Not Resolved]
  - Bursitis [Recovering/Resolving]
  - Headache [Recovered/Resolved]
  - Weight decreased [Unknown]
  - Heart rate increased [Recovered/Resolved]
  - Oedema peripheral [Recovered/Resolved]
  - Weight increased [Recovered/Resolved]
  - Flushing [Recovered/Resolved]
  - Fluid retention [Not Recovered/Not Resolved]
  - Dehydration [Unknown]
  - Blood potassium abnormal [Not Recovered/Not Resolved]

NARRATIVE: CASE EVENT DATE: 20211123
